FAERS Safety Report 26177245 (Version 1)
Quarter: 2025Q4

REPORT INFORMATION
  Report Type: Report from Study
  Country: CO (occurrence: CO)
  Receive Date: 20251219
  Receipt Date: 20251219
  Transmission Date: 20260118
  Serious: Yes (Hospitalization)
  Sender: ABBVIE
  Company Number: CO-JNJFOC-20251175942

PATIENT
  Age: 73 Year
  Sex: Male
  Weight: 58 kg

DRUGS (1)
  1. IMBRUVICA [Suspect]
     Active Substance: IBRUTINIB
     Indication: Waldenstrom^s macroglobulinaemia
     Dosage: LAST ADMIN DATE- 2025?IBRUTINIB 140 MG, A DAILY DOSE OF 280 MG PER DAY
     Route: 048
     Dates: start: 20250520

REACTIONS (2)
  - Nonspecific reaction [Unknown]
  - Off label use [Unknown]

NARRATIVE: CASE EVENT DATE: 20251114
